FAERS Safety Report 8532683-9 (Version None)
Quarter: 2012Q3

REPORT INFORMATION
  Report Type: 
  Country: None (occurrence: None)
  Receive Date: 20120724
  Receipt Date: 20120713
  Transmission Date: 20120928
  Serious: Yes (Hospitalization, Other)
  Sender: FDA-Public Use
  Company Number: PHEH2012US013915

PATIENT
  Sex: Female

DRUGS (10)
  1. PANTOPRAZOLE [Concomitant]
     Dosage: 40 MG, QD
  2. LOSARTAN POTASSIUM [Concomitant]
     Dosage: 100 MG, QD
  3. TIKOSYN [Concomitant]
  4. POTASSIUM CHLORIDE [Concomitant]
  5. AMLODIPINE BESYLATE [Concomitant]
     Dosage: 5 MG, QD
  6. GLEEVEC [Suspect]
     Dosage: 400 MG, UNK
  7. METOPROLOL SUCCINATE [Concomitant]
  8. SYNTHROID [Concomitant]
     Dosage: 0.15 MG, QD
  9. ZOLPIDEM TARTRATE [Concomitant]
     Dosage: 5 MG, UNK
  10. FUROSEMIDE [Concomitant]

REACTIONS (9)
  - MUSCLE SPASMS [None]
  - ALOPECIA [None]
  - HAIR TEXTURE ABNORMAL [None]
  - DUODENAL ULCER [None]
  - VENTRICULAR FIBRILLATION [None]
  - ABDOMINAL DISTENSION [None]
  - ATRIAL FIBRILLATION [None]
  - THROMBOSIS [None]
  - ABDOMINAL DISCOMFORT [None]
